FAERS Safety Report 7789033-5 (Version None)
Quarter: 2011Q3

REPORT INFORMATION
  Report Type: 
  Country: None (occurrence: None)
  Receive Date: 20110930
  Receipt Date: 20110920
  Transmission Date: 20111222
  Serious: Yes (Hospitalization)
  Sender: FDA-Public Use
  Company Number: US-JNJFOC-20110909937

PATIENT
  Sex: Male
  Weight: 55.9 kg

DRUGS (4)
  1. MESALAMINE [Concomitant]
     Route: 048
  2. BUDESONIDE [Concomitant]
  3. OXACILLIN [Suspect]
     Indication: STAPHYLOCOCCAL INFECTION
     Route: 042
  4. REMICADE [Suspect]
     Indication: INFLAMMATORY BOWEL DISEASE
     Route: 042
     Dates: start: 20100910

REACTIONS (2)
  - OSTEOMYELITIS [None]
  - ARTHRITIS BACTERIAL [None]
